FAERS Safety Report 9370306 (Version 1)
Quarter: 2013Q2

REPORT INFORMATION
  Report Type: Spontaneous
  Country: IT (occurrence: IT)
  Receive Date: 20130626
  Receipt Date: 20130626
  Transmission Date: 20140414
  Serious: Yes (Hospitalization)
  Sender: FDA-Public Use
  Company Number: IT-TEVA-413769ISR

PATIENT
  Age: 56 Year
  Sex: Male

DRUGS (7)
  1. VINCRISTINA TEVA ITALIA [Suspect]
     Indication: NON-HODGKIN^S LYMPHOMA
     Dosage: 2MG, CYCLICAL
     Route: 042
     Dates: start: 20120911, end: 20120911
  2. NAVOBAN 2MG/2ML [Concomitant]
     Route: 042
     Dates: start: 20120911, end: 20120911
  3. ENDOXAN BAXTER [Concomitant]
     Dosage: 1400 MILLIGRAM DAILY; POWDER FOR INJECTABLE SOLUTION
     Route: 042
     Dates: start: 20120911, end: 20120911
  4. PARIET 20MG [Concomitant]
     Dosage: 20 MILLIGRAM DAILY; GASTRO-RESISTANT TABLETS
     Route: 048
  5. LAMIVUDINA TEVA 100MG [Concomitant]
     Dosage: 100 MILLIGRAM DAILY;
     Route: 048
  6. URBASON SOLUBILE [Concomitant]
     Dosage: 80 MILLIGRAM DAILY; POWDER AND SOLVENT FOR INJECTABLE SOLUTION
     Route: 042
  7. DELTACORTENE 25MG [Concomitant]
     Dosage: 75 MILLIGRAM DAILY;
     Route: 048
     Dates: start: 20120912, end: 20120915

REACTIONS (3)
  - Constipation [Recovered/Resolved]
  - Bone pain [Recovered/Resolved]
  - Infection [Recovered/Resolved]
